FAERS Safety Report 13037238 (Version 1)
Quarter: 2016Q4

REPORT INFORMATION
  Report Type: Spontaneous
  Country: KR (occurrence: KR)
  Receive Date: 20161216
  Receipt Date: 20161216
  Transmission Date: 20170207
  Serious: Yes (Other)
  Sender: FDA-Public Use
  Company Number: KR-IMPAX LABORATORIES, INC-2016-IPXL-02292

PATIENT
  Age: 47 Year
  Sex: Male

DRUGS (1)
  1. ADRENACLICK [Suspect]
     Active Substance: EPINEPHRINE
     Indication: HAEMORRHAGE PROPHYLAXIS
     Dosage: 0.2-0.3 ML (1MG/AMPULE), UNK
     Route: 058

REACTIONS (2)
  - Product use issue [Unknown]
  - Stress cardiomyopathy [Recovered/Resolved]
